FAERS Safety Report 23083234 (Version 2)
Quarter: 2024Q1

REPORT INFORMATION
  Report Type: Spontaneous
  Country: US (occurrence: US)
  Receive Date: 20231019
  Receipt Date: 20240306
  Transmission Date: 20240409
  Serious: No
  Sender: FDA-Public Use
  Company Number: US-SA-SAC20231013000812

PATIENT
  Age: 47 Year
  Sex: Female
  Weight: 66.22 kg

DRUGS (9)
  1. DUPIXENT [Suspect]
     Active Substance: DUPILUMAB
     Indication: Dermatitis atopic
     Dosage: 300 MG, QOW
     Route: 058
  2. IRON [Concomitant]
     Active Substance: IRON
     Dosage: UNK
  3. VITAMINS NOS [Concomitant]
     Active Substance: VITAMINS
  4. VITAMIN B12 [Concomitant]
     Active Substance: CYANOCOBALAMIN
  5. BIOTIN [Concomitant]
     Active Substance: BIOTIN
  6. FLONASE ALLERGY RELIEF [Concomitant]
     Active Substance: FLUTICASONE PROPIONATE
  7. SPIRONOLACTONE [Concomitant]
     Active Substance: SPIRONOLACTONE
  8. SOOLANTRA [Concomitant]
     Active Substance: IVERMECTIN
  9. AZELASTINE HYDROCHLORIDE [Concomitant]
     Active Substance: AZELASTINE HYDROCHLORIDE

REACTIONS (3)
  - Eczema [Unknown]
  - Dermatitis atopic [Not Recovered/Not Resolved]
  - Therapeutic response shortened [Not Recovered/Not Resolved]
